FAERS Safety Report 6628380-7 (Version None)
Quarter: 2010Q1

REPORT INFORMATION
  Report Type: 
  Country: None (occurrence: None)
  Receive Date: 20100311
  Receipt Date: 20100226
  Transmission Date: 20100710
  Serious: Yes (Death)
  Sender: FDA-Public Use
  Company Number: JP-ROCHE-688290

PATIENT
  Sex: Female

DRUGS (1)
  1. PEGASYS [Suspect]
     Indication: CHRONIC HEPATITIS
     Dosage: FREQUENCY: 1/
     Route: 058
     Dates: start: 20100219, end: 20100219

REACTIONS (1)
  - PULMONARY HAEMORRHAGE [None]
